FAERS Safety Report 6288479-4 (Version None)
Quarter: 2009Q3

REPORT INFORMATION
  Report Type: 
  Country: None (occurrence: None)
  Receive Date: 20090729
  Receipt Date: 20090721
  Transmission Date: 20100115
  Serious: Yes (Hospitalization)
  Sender: FDA-Public Use
  Company Number: FR-ABBOTT-09P-056-0586684-00

PATIENT
  Sex: Male

DRUGS (3)
  1. HUMIRA [Suspect]
     Indication: CROHN'S DISEASE
     Route: 058
     Dates: start: 20090522
  2. HUMIRA [Suspect]
     Route: 058
     Dates: start: 20090702
  3. VALIUM [Concomitant]
     Indication: ANXIETY

REACTIONS (2)
  - DELIRIUM TREMENS [None]
  - RASH [None]
